FAERS Safety Report 18534078 (Version 1)
Quarter: 2020Q4

REPORT INFORMATION
  Report Type: Spontaneous
  Country: US (occurrence: US)
  Receive Date: 20201123
  Receipt Date: 20201123
  Transmission Date: 20210114
  Serious: Yes (Death)
  Sender: FDA-Public Use
  Company Number: None

PATIENT
  Age: 73 Year
  Sex: Female
  Weight: 80.4 kg

DRUGS (18)
  1. FUROSEMIDE. [Concomitant]
     Active Substance: FUROSEMIDE
     Dates: start: 20201113, end: 20201113
  2. CARVEDILOL. [Concomitant]
     Active Substance: CARVEDILOL
     Dates: start: 20201114, end: 20201115
  3. DRONEDARONE [Concomitant]
     Active Substance: DRONEDARONE
     Dates: start: 20201114, end: 20201115
  4. AZITHROMYIN [Concomitant]
     Dates: start: 20201113, end: 20201113
  5. IPRATROPIUM/ALBUTEROL [Concomitant]
     Active Substance: ALBUTEROL\IPRATROPIUM
     Dates: start: 20201113, end: 20201116
  6. METHYLPREDNISOLONE. [Concomitant]
     Active Substance: METHYLPREDNISOLONE
     Dates: start: 20201113, end: 20201116
  7. MORPHINE [Concomitant]
     Active Substance: MORPHINE
     Dates: start: 20201116, end: 20201116
  8. ATORVASTATIN [Concomitant]
     Active Substance: ATORVASTATIN
     Dates: start: 20201114, end: 20201115
  9. ISOSORBIDE MONONITRATE. [Concomitant]
     Active Substance: ISOSORBIDE MONONITRATE
     Dates: start: 20201114, end: 20201115
  10. PREDNISOLONE OPTHALMIC [Concomitant]
     Dates: start: 20201114, end: 20201115
  11. SCOPOLAMINE [Concomitant]
     Active Substance: SCOPOLAMINE
     Dates: start: 20201116, end: 20201116
  12. APIXABAN [Concomitant]
     Active Substance: APIXABAN
     Dates: start: 20201114, end: 20201114
  13. REMDESIVIR. [Suspect]
     Active Substance: REMDESIVIR
     Indication: COVID-19
     Route: 042
     Dates: start: 20201114, end: 20201116
  14. POTASSIUM [Concomitant]
     Active Substance: POTASSIUM
     Dates: start: 20201114, end: 20201115
  15. ASPIRIN. [Concomitant]
     Active Substance: ASPIRIN
     Dates: start: 20201115, end: 20201115
  16. DORZOLAMIDE OPTHALMIC [Concomitant]
     Dates: start: 20201113, end: 20201115
  17. PROCHLORPERAZINE. [Concomitant]
     Active Substance: PROCHLORPERAZINE
     Dates: start: 20201114, end: 20201115
  18. LATANAPROST [Concomitant]
     Active Substance: LATANOPROST
     Dates: start: 20201113, end: 20201115

REACTIONS (1)
  - Death [None]

NARRATIVE: CASE EVENT DATE: 20201116
